FAERS Safety Report 24557567 (Version 5)
Quarter: 2025Q3

REPORT INFORMATION
  Report Type: Report from Study
  Country: CA (occurrence: CA)
  Receive Date: 20241028
  Receipt Date: 20250803
  Transmission Date: 20251021
  Serious: Yes (Other)
  Sender: ALEXION PHARMACEUTICALS
  Company Number: CA-AstraZeneca-2024A211501

PATIENT
  Age: 45 Year
  Sex: Male
  Weight: 71 kg

DRUGS (6)
  1. BENRALIZUMAB [Suspect]
     Active Substance: BENRALIZUMAB
     Indication: Asthma
  2. ALBUTEROL [Concomitant]
     Active Substance: ALBUTEROL
     Route: 065
  3. ARNUITY ELLIPTA [Concomitant]
     Active Substance: FLUTICASONE FUROATE
     Dosage: 200 MICROGRAM, QOD
     Route: 065
  4. SYMBICORT [Concomitant]
     Active Substance: BUDESONIDE\FORMOTEROL FUMARATE DIHYDRATE
  5. NUCALA [Concomitant]
     Active Substance: MEPOLIZUMAB
     Route: 065
  6. PREDNISONE [Concomitant]
     Active Substance: PREDNISONE
     Route: 065

REACTIONS (9)
  - Malaise [Unknown]
  - Nephrotic syndrome [Unknown]
  - Pleural effusion [Unknown]
  - Drug reaction with eosinophilia and systemic symptoms [Unknown]
  - Respiratory symptom [Unknown]
  - Respiratory disorder [Unknown]
  - Spirometry abnormal [Unknown]
  - Nasal disorder [Unknown]
  - Illness [Unknown]
